FAERS Safety Report 9463598 (Version 1)
Quarter: 2013Q3

REPORT INFORMATION
  Report Type: Spontaneous
  Country: US (occurrence: None)
  Receive Date: 20130815
  Receipt Date: 20130815
  Transmission Date: 20140515
  Serious: No
  Sender: FDA-Public Use
  Company Number: None

PATIENT
  Sex: Female

DRUGS (1)
  1. HUMIRA [Suspect]
     Dosage: 40MG  EVERY 14 DAYS  SUBQ
     Route: 058
     Dates: start: 20130624, end: 20130813

REACTIONS (2)
  - Rash erythematous [None]
  - Feeling hot [None]
